FAERS Safety Report 8023036-0 (Version None)
Quarter: 2012Q1

REPORT INFORMATION
  Report Type: 
  Country: None (occurrence: None)
  Receive Date: 20120104
  Receipt Date: 20120103
  Transmission Date: 20120608
  Serious: No
  Sender: FDA-Public Use
  Company Number: US-BAYER-2012-000820

PATIENT
  Age: 43 Year
  Sex: Female

DRUGS (2)
  1. MIRENA [Suspect]
     Indication: CONTRACEPTION
     Dosage: 20 MCG/24HR, CONT
     Route: 015
     Dates: start: 20111230, end: 20111230
  2. COPPER T [Concomitant]
     Dosage: UNK UNK, CONT
     Route: 015
     Dates: end: 20111230

REACTIONS (1)
  - NO ADVERSE EVENT [None]
